FAERS Safety Report 12782993 (Version 7)
Quarter: 2017Q2

REPORT INFORMATION
  Report Type: Spontaneous
  Country: US (occurrence: US)
  Receive Date: 20160927
  Receipt Date: 20170424
  Transmission Date: 20170830
  Serious: Yes (Death, Hospitalization, Other)
  Sender: FDA-Public Use
  Company Number: US-PFIZER INC-2016447119

PATIENT
  Age: 73 Year
  Sex: Female
  Weight: 79.82 kg

DRUGS (6)
  1. IBRANCE [Suspect]
     Active Substance: PALBOCICLIB
     Indication: BREAST CANCER METASTATIC
     Dosage: 125 MG, CYCLIC (DAYS 1-21 Q28 DAYS)
     Route: 048
     Dates: start: 20160401
  2. IBRANCE [Suspect]
     Active Substance: PALBOCICLIB
     Dosage: 125 MG, CYCLIC (DAYS 1-21 Q28 DAYS)
     Route: 048
     Dates: start: 20160401
  3. IBRANCE [Suspect]
     Active Substance: PALBOCICLIB
     Dosage: 100 MG, CYCLIC, (DAYS 1-21 Q 28 DAYS)
     Route: 048
     Dates: start: 20160401
  4. IBRANCE [Suspect]
     Active Substance: PALBOCICLIB
     Dosage: 100 MG, CYCLIC (DAYS 1-21 Q28 DAYS)
     Route: 048
     Dates: start: 20160401, end: 201704
  5. IBRANCE [Suspect]
     Active Substance: PALBOCICLIB
     Dosage: 100 MG, CYCLIC  (DAYS 1-21 Q28 DAYS)
     Route: 048
     Dates: start: 20160401, end: 2016
  6. IBRANCE [Suspect]
     Active Substance: PALBOCICLIB
     Dosage: 100 MG, CYCLIC (DAYS 1-21 Q28 DAYS)
     Route: 048
     Dates: start: 20160401, end: 2016

REACTIONS (16)
  - Pneumonia [Unknown]
  - Myocardial infarction [Unknown]
  - Malaise [Unknown]
  - Feeding disorder [Unknown]
  - Death [Fatal]
  - Loss of consciousness [Not Recovered/Not Resolved]
  - Speech disorder [Unknown]
  - Drug dose omission [Unknown]
  - Pulmonary pain [Unknown]
  - Fatigue [Unknown]
  - Dysgeusia [Unknown]
  - Haemorrhage intracranial [Unknown]
  - Radiation skin injury [Unknown]
  - Dyspnoea [Unknown]
  - Neoplasm progression [Unknown]
  - Alopecia [Unknown]

NARRATIVE: CASE EVENT DATE: 2016
